FAERS Safety Report 12660939 (Version 2)
Quarter: 2016Q3

REPORT INFORMATION
  Report Type: Spontaneous
  Country: US (occurrence: US)
  Receive Date: 20160817
  Receipt Date: 20160901
  Transmission Date: 20161109
  Serious: No
  Sender: FDA-Public Use
  Company Number: US-RELYPSA-RLY2016001377

PATIENT
  Sex: Female

DRUGS (1)
  1. VELTASSA [Suspect]
     Active Substance: PATIROMER
     Indication: PRODUCT USED FOR UNKNOWN INDICATION
     Dosage: 8.4 G, UNK
     Route: 065
     Dates: start: 20160707

REACTIONS (4)
  - Nausea [Unknown]
  - Drug administration error [Unknown]
  - Retching [Unknown]
  - Flatulence [Unknown]

NARRATIVE: CASE EVENT DATE: 201607
